FAERS Safety Report 19913860 (Version 1)
Quarter: 2021Q4

REPORT INFORMATION
  Report Type: Spontaneous
  Country: CN (occurrence: CN)
  Receive Date: 20211004
  Receipt Date: 20211004
  Transmission Date: 20220304
  Serious: Yes (Other)
  Sender: FDA-Public Use
  Company Number: CN-BAXTER-2021BAX024276

PATIENT
  Age: 46 Year
  Sex: Female
  Weight: 56 kg

DRUGS (10)
  1. CYCLOPHOSPHAMIDE [Suspect]
     Active Substance: CYCLOPHOSPHAMIDE
     Indication: Non-Hodgkin^s lymphoma
     Dosage: CYCLOPHOSPHORYL FOR INJECTION 1.2G + 0.9% SODIUM CHLORIDE INJECTION 50ML MICROPUMP INJECTION
     Route: 042
     Dates: start: 20201118, end: 20201118
  2. DOXORUBICIN HYDROCHLORIDE [Suspect]
     Active Substance: DOXORUBICIN HYDROCHLORIDE
     Indication: Non-Hodgkin^s lymphoma
     Dosage: DOXORUBICIN HYDROCHLORIDE LIPOSOME INJECTION 20 MG + 5% GLUCOSE INJECTION 250ML IVGTT
     Route: 041
     Dates: start: 20201119, end: 20201119
  3. DOXORUBICIN HYDROCHLORIDE [Suspect]
     Active Substance: DOXORUBICIN HYDROCHLORIDE
     Dosage: DOXORUBICIN HYDROCHLORIDE LIPOSOME INJECTION 20 MG + 5% GLUCOSE INJECTION 250ML IVGTT ONCE
     Route: 041
     Dates: start: 20201120, end: 20201120
  4. VINDESINE SULFATE [Suspect]
     Active Substance: VINDESINE SULFATE
     Indication: Non-Hodgkin^s lymphoma
     Dosage: VINDESINE SULFATE FOR INJECTION 40 MG + 0.9% SODIUM CHLORIDE INJECTION 20ML MICROPUMP INJECTION
     Route: 042
     Dates: start: 20201118, end: 20201118
  5. ETOPOSIDE [Suspect]
     Active Substance: ETOPOSIDE
     Indication: Non-Hodgkin^s lymphoma
     Dosage: ETOPOSIDE INJECTION, 0.1G + 0.9% SODIUM CHLORIDE INJECTION 500ML IVGTT QD
     Route: 041
     Dates: start: 20201118, end: 20201119
  6. SODIUM CHLORIDE [Suspect]
     Active Substance: SODIUM CHLORIDE
     Indication: Medication dilution
     Route: 042
     Dates: start: 20201118, end: 20201118
  7. SODIUM CHLORIDE [Suspect]
     Active Substance: SODIUM CHLORIDE
     Route: 041
     Dates: start: 20201118, end: 20201119
  8. SODIUM CHLORIDE [Suspect]
     Active Substance: SODIUM CHLORIDE
     Indication: Medication dilution
     Route: 042
     Dates: start: 20201118, end: 20201118
  9. DEXTROSE [Suspect]
     Active Substance: DEXTROSE
     Indication: Medication dilution
     Route: 041
     Dates: start: 20201120, end: 20201120
  10. DEXTROSE [Suspect]
     Active Substance: DEXTROSE
     Route: 041
     Dates: start: 20201119, end: 20201119

REACTIONS (4)
  - Palmar-plantar erythrodysaesthesia syndrome [Recovering/Resolving]
  - Neutrophil count decreased [Recovered/Resolved]
  - White blood cell count decreased [Recovered/Resolved]
  - Platelet count decreased [Recovered/Resolved]

NARRATIVE: CASE EVENT DATE: 20201125
